FAERS Safety Report 16825333 (Version 2)
Quarter: 2019Q3

REPORT INFORMATION
  Report Type: Spontaneous
  Country: US (occurrence: US)
  Receive Date: 20190919
  Receipt Date: 20190919
  Transmission Date: 20191005
  Serious: Yes (Other)
  Sender: FDA-Public Use
  Company Number: US-ROCHE-2409690

PATIENT
  Sex: Female

DRUGS (2)
  1. OCREVUS [Suspect]
     Active Substance: OCRELIZUMAB
     Indication: MULTIPLE SCLEROSIS
     Route: 042
     Dates: start: 201705
  2. OCREVUS [Suspect]
     Active Substance: OCRELIZUMAB
     Route: 011
     Dates: start: 20190320, end: 20190911

REACTIONS (1)
  - Ovarian cancer [Unknown]
